FAERS Safety Report 11692826 (Version 1)
Quarter: 2015Q4

REPORT INFORMATION
  Report Type: Spontaneous
  Country: US (occurrence: None)
  Receive Date: 20151102
  Receipt Date: 20151102
  Transmission Date: 20160304
  Serious: Yes (Death)
  Sender: FDA-Public Use
  Company Number: None

PATIENT
  Age: 86 Year
  Sex: Female

DRUGS (1)
  1. OCTREOTIDE 200 MCG/ML [Suspect]
     Active Substance: OCTREOTIDE
     Indication: CARCINOID TUMOUR
     Dosage: 200.00
     Route: 058
     Dates: start: 20150904, end: 20151014

REACTIONS (1)
  - Death [None]

NARRATIVE: CASE EVENT DATE: 20151014
